FAERS Safety Report 23271337 (Version 1)
Quarter: 2023Q4

REPORT INFORMATION
  Report Type: Spontaneous
  Country: JP (occurrence: JP)
  Receive Date: 20231207
  Receipt Date: 20231207
  Transmission Date: 20240110
  Serious: Yes (Other)
  Sender: FDA-Public Use
  Company Number: JP-002147023-NVSC2023JP257372

PATIENT
  Age: 61 Year
  Sex: Male

DRUGS (4)
  1. IMATINIB [Suspect]
     Active Substance: IMATINIB
     Indication: Pulmonary veno-occlusive disease
     Dosage: 100 MG, QD
     Route: 065
  2. IMATINIB [Suspect]
     Active Substance: IMATINIB
     Indication: Pulmonary capillary haemangiomatosis
  3. BOSENTAN [Concomitant]
     Active Substance: BOSENTAN
     Indication: Pulmonary veno-occlusive disease
     Dosage: 250 MG, QD (BEFORE AND AFTER IMATINIB USAGE)
     Route: 065
  4. BOSENTAN [Concomitant]
     Active Substance: BOSENTAN
     Indication: Pulmonary capillary haemangiomatosis

REACTIONS (4)
  - Pulmonary veno-occlusive disease [Unknown]
  - Pulmonary capillary haemangiomatosis [Unknown]
  - Condition aggravated [Unknown]
  - Drug ineffective for unapproved indication [Unknown]
